FAERS Safety Report 14669917 (Version 1)
Quarter: 2018Q1

REPORT INFORMATION
  Report Type: Spontaneous
  Country: US (occurrence: US)
  Receive Date: 20180322
  Receipt Date: 20180322
  Transmission Date: 20180509
  Serious: Yes (Hospitalization)
  Sender: FDA-Public Use
  Company Number: US-SA-2018SA075054

PATIENT
  Age: 63 Year
  Sex: Female

DRUGS (16)
  1. ELIQUIS [Concomitant]
     Active Substance: APIXABAN
     Route: 065
  2. ASPIRIN. [Concomitant]
     Active Substance: ASPIRIN
     Route: 065
  3. MULTAQ [Suspect]
     Active Substance: DRONEDARONE
     Route: 048
  4. FUROSEMIDE. [Concomitant]
     Active Substance: FUROSEMIDE
     Indication: SWELLING
     Dosage: FREQ: 20MG ONCE A DAY, MON, WED, FRI AS NEEDED FOR SWELLING
     Route: 065
  5. LOVASTATIN. [Concomitant]
     Active Substance: LOVASTATIN
     Route: 065
  6. CALCIUM [Concomitant]
     Active Substance: CALCIUM
     Route: 065
  7. MINERALS NOS/VITAMINS NOS [Concomitant]
     Route: 065
  8. FUROSEMIDE. [Concomitant]
     Active Substance: FUROSEMIDE
     Indication: OEDEMA
     Dosage: FREQ: 20MG ONCE A DAY, MON, WED, FRI AS NEEDED FOR SWELLING
     Route: 065
  9. VITAMIN C [Concomitant]
     Active Substance: ASCORBIC ACID
     Route: 065
  10. AMIODARONE [Concomitant]
     Active Substance: AMIODARONE
     Route: 065
  11. COLCHICINE. [Concomitant]
     Active Substance: COLCHICINE
     Route: 065
  12. METFORMIN [Concomitant]
     Active Substance: METFORMIN HYDROCHLORIDE
     Route: 065
  13. FASLODEX [Concomitant]
     Active Substance: FULVESTRANT
     Dosage: EVERY 4 WEEKS, 500MG IN EACH BUTTOCKS
     Route: 065
  14. METOPROLOL. [Concomitant]
     Active Substance: METOPROLOL
     Route: 065
  15. IBRANCE [Suspect]
     Active Substance: PALBOCICLIB
     Indication: BREAST CANCER METASTATIC
     Dosage: FREQ: 21 DAYS AND OFF 7 DAY
     Route: 048
     Dates: start: 201702
  16. COENZYME Q10 [Concomitant]
     Active Substance: UBIDECARENONE
     Route: 065

REACTIONS (2)
  - Chest discomfort [Recovering/Resolving]
  - Chest pain [Recovering/Resolving]
